FAERS Safety Report 9610653 (Version 8)
Quarter: 2014Q1

REPORT INFORMATION
  Report Type: Report from Study
  Country: JP (occurrence: JP)
  Receive Date: 20131009
  Receipt Date: 20140226
  Transmission Date: 20141002
  Serious: Yes (Hospitalization, Disabling)
  Sender: FDA-Public Use
  Company Number: JP-PFIZER INC-2013285336

PATIENT
  Age: 58 Year
  Sex: Male
  Weight: 64.2 kg

DRUGS (14)
  1. XALKORI [Suspect]
     Indication: NON-SMALL CELL LUNG CANCER
     Dosage: 250 MG, 2X/DAY
     Route: 048
     Dates: start: 20130917, end: 20130921
  2. ALOSENN [Concomitant]
     Dosage: 1 G, AS NEEDED
     Route: 048
     Dates: start: 20130817
  3. SM [Concomitant]
     Dosage: 1.3 G, 3X/DAY
     Route: 048
     Dates: start: 20130920
  4. OXYCONTIN [Concomitant]
     Dosage: 20 MG, 2X/DAY
     Route: 048
     Dates: start: 20130529
  5. MAG-LAX [Concomitant]
     Dosage: 330 MG, 3X/DAY
     Route: 048
     Dates: start: 20130817
  6. METHYCOBAL [Concomitant]
     Dosage: 500 UG, 3X/DAY
     Route: 048
     Dates: start: 20130904
  7. LOXONIN [Concomitant]
     Dosage: 60 MG, 3X/DAY
     Route: 048
     Dates: start: 20130827
  8. OXINORM [Concomitant]
     Dosage: 5 MG, AS NEEDED
     Route: 048
     Dates: start: 20130917, end: 20130917
  9. OXINORM [Concomitant]
     Dosage: 10 MG, AS NEEDED
     Route: 048
     Dates: start: 20130919
  10. PREGABALIN [Concomitant]
     Dosage: 75 MG, 1X/DAY
     Route: 048
     Dates: start: 20130911
  11. NEXIUM [Concomitant]
     Dosage: 20 MG, 1X/DAY
     Route: 048
     Dates: start: 20130826
  12. SOLITA-T1 INJECTION [Concomitant]
     Dosage: 500 ML, 1X/DAY
     Dates: start: 20130906
  13. HEPARIN SODIUM [Concomitant]
     Dosage: 22000 IU, DAILY
     Dates: start: 20130826
  14. ZOSYN [Concomitant]
     Dosage: 4.5 G, 4X/DAY
     Dates: start: 20130918, end: 20130921

REACTIONS (1)
  - Interstitial lung disease [Not Recovered/Not Resolved]
